FAERS Safety Report 8221609-3 (Version None)
Quarter: 2012Q1

REPORT INFORMATION
  Report Type: 
  Country: None (occurrence: None)
  Receive Date: 20120316
  Receipt Date: 20120307
  Transmission Date: 20120608
  Serious: Yes (Other)
  Sender: FDA-Public Use
  Company Number: 2012HGS-003359

PATIENT
  Age: 43 Year
  Sex: Female
  Weight: 56.9718 kg

DRUGS (6)
  1. GOLIMUMAB (GOLIMUMAB) (GOLIMUMAB) [Concomitant]
  2. AMBIEN [Concomitant]
  3. SYNTHROID (LEVOTHYROXINE SODIUM) (LEVOTHYROXINE SODIUM) [Concomitant]
  4. BENLYSTA [Suspect]
     Dosage: 1 IN 1 TOTAL, TOPICAL
     Route: 061
     Dates: start: 20110818
  5. ACIPHEX (RABEPRAZOLE SODIUM) (RABEPRAZOLE SODIUM) [Concomitant]
  6. AZATHIOPRINE (AZATHIOPRINE) (AZATHIOPRINE) [Concomitant]

REACTIONS (6)
  - THROAT IRRITATION [None]
  - PRURITUS [None]
  - HYPERSENSITIVITY [None]
  - ACCIDENTAL EXPOSURE [None]
  - URTICARIA [None]
  - DYSPHONIA [None]
